FAERS Safety Report 6857183-3 (Version None)
Quarter: 2010Q3

REPORT INFORMATION
  Report Type: 
  Country: None (occurrence: None)
  Receive Date: 20100719
  Receipt Date: 20091119
  Transmission Date: 20110219
  Serious: No
  Sender: FDA-Public Use
  Company Number: US-KINGPHARMUSA00001-K200901461

PATIENT

DRUGS (1)
  1. LEVOXYL [Suspect]
     Dosage: 75 MCG, UNK

REACTIONS (13)
  - ANXIETY [None]
  - BREAST SWELLING [None]
  - CARDIAC DISORDER [None]
  - DRY SKIN [None]
  - FATIGUE [None]
  - FEELING OF BODY TEMPERATURE CHANGE [None]
  - HEART RATE INCREASED [None]
  - MEMORY IMPAIRMENT [None]
  - PAIN OF SKIN [None]
  - SLEEP DISORDER [None]
  - UNEVALUABLE EVENT [None]
  - URTICARIA [None]
  - WEIGHT DECREASED [None]
